FAERS Safety Report 5237115-4 (Version None)
Quarter: 2007Q1

REPORT INFORMATION
  Report Type: 
  Country: None (occurrence: None)
  Receive Date: 20070209
  Receipt Date: 20070201
  Transmission Date: 20070707
  Serious: Yes (Hospitalization)
  Sender: FDA-Public Use
  Company Number: 163-21880-06100082

PATIENT
  Age: 41 Year
  Sex: Male

DRUGS (5)
  1. REVLIMID [Suspect]
     Indication: MULTIPLE MYELOMA
     Dosage: SEE IMAGE
     Route: 048
     Dates: start: 20060811, end: 20060927
  2. REVLIMID [Suspect]
     Indication: MULTIPLE MYELOMA
     Dosage: SEE IMAGE
     Route: 048
     Dates: start: 20061026
  3. VICODIN [Concomitant]
  4. OXYCODONE HCL [Concomitant]
  5. ASPIRIN [Concomitant]

REACTIONS (7)
  - CHEST WALL MASS [None]
  - DEEP VEIN THROMBOSIS [None]
  - DRY SKIN [None]
  - FATIGUE [None]
  - JOINT SWELLING [None]
  - MUSCLE SPASMS [None]
  - RASH [None]
